FAERS Safety Report 20946592 (Version 1)
Quarter: 2022Q2

REPORT INFORMATION
  Report Type: Spontaneous
  Country: US (occurrence: US)
  Receive Date: 20220610
  Receipt Date: 20220610
  Transmission Date: 20220721
  Serious: Yes (Hospitalization)
  Sender: FDA-Public Use
  Company Number: US-JNJFOC-20220601304

PATIENT
  Age: 18 Year
  Sex: Female
  Weight: 83.6 kg

DRUGS (3)
  1. CONCERTA [Suspect]
     Active Substance: METHYLPHENIDATE HYDROCHLORIDE
     Indication: Attention deficit hyperactivity disorder
     Dosage: 54 MG, 1 TABLET, BY MOUTH, EVERY MORNING
     Route: 048
     Dates: start: 20220310, end: 20220404
  2. CONCERTA [Suspect]
     Active Substance: METHYLPHENIDATE HYDROCHLORIDE
     Route: 048
     Dates: start: 20220404, end: 20220429
  3. CONCERTA [Suspect]
     Active Substance: METHYLPHENIDATE HYDROCHLORIDE
     Route: 048
     Dates: start: 20220429, end: 20220512

REACTIONS (1)
  - Bipolar I disorder [Not Recovered/Not Resolved]

NARRATIVE: CASE EVENT DATE: 20220503
